FAERS Safety Report 9053513 (Version 3)
Quarter: 2013Q1

REPORT INFORMATION
  Report Type: Spontaneous
  Country: GR (occurrence: GR)
  Receive Date: 20130208
  Receipt Date: 20130318
  Transmission Date: 20140127
  Serious: Yes (Life-Threatening, Hospitalization, Other)
  Sender: FDA-Public Use
  Company Number: PHHY2013GR009792

PATIENT
  Age: 72 Year
  Sex: Male

DRUGS (4)
  1. GILENYA [Suspect]
     Indication: RELAPSING-REMITTING MULTIPLE SCLEROSIS
     Dosage: 0.5 MG, QD
     Route: 048
     Dates: start: 20121221, end: 20130116
  2. TYSABRI [Suspect]
     Indication: MULTIPLE SCLEROSIS
     Dosage: UNK
     Route: 042
     Dates: start: 2009, end: 201208
  3. PREZOLON [Concomitant]
     Route: 048
  4. MODIODAL [Concomitant]
     Dosage: 100 MG, QD
     Route: 048

REACTIONS (6)
  - Encephalitis [Recovering/Resolving]
  - Epilepsy [Recovering/Resolving]
  - Pyrexia [Recovering/Resolving]
  - Sluggishness [Recovering/Resolving]
  - Tuberculosis [Unknown]
  - Central nervous system lesion [Recovering/Resolving]
